FAERS Safety Report 18203503 (Version 2)
Quarter: 2021Q3

REPORT INFORMATION
  Report Type: Report from Study
  Country: US (occurrence: US)
  Receive Date: 20200827
  Receipt Date: 20210906
  Transmission Date: 20211014
  Serious: Yes (Other)
  Sender: FDA-Public Use
  Company Number: US-SHIRE-US202027618

PATIENT
  Sex: Female

DRUGS (1)
  1. HUMAN NORMAL IMMUNOGLOBULIN; LIQUID [Suspect]
     Active Substance: HUMAN IMMUNOGLOBULIN G
     Indication: PRIMARY IMMUNODEFICIENCY SYNDROME
     Dosage: 30 GRAM, 1X A MONTH
     Route: 042

REACTIONS (6)
  - Headache [Unknown]
  - Sleep disorder [Unknown]
  - Hypertonic bladder [Unknown]
  - Weight increased [Unknown]
  - Papilloedema [Unknown]
  - Intracranial pressure increased [Unknown]
